FAERS Safety Report 5730776-2 (Version None)
Quarter: 2008Q2

REPORT INFORMATION
  Report Type: 
  Country: None (occurrence: None)
  Receive Date: 20080507
  Receipt Date: 20080425
  Transmission Date: 20081010
  Serious: Yes (Other)
  Sender: FDA-Public Use
  Company Number: JP-PFIZER INC-2008030106

PATIENT
  Sex: Female
  Weight: 78 kg

DRUGS (10)
  1. EPLERENONE [Suspect]
     Indication: HYPERTENSION
     Dosage: DAILY DOSE:50MG
     Route: 048
     Dates: start: 20080223, end: 20080226
  2. NORVASC [Concomitant]
     Route: 048
  3. PANALDINE [Concomitant]
     Route: 048
  4. VALSARTAN [Concomitant]
     Route: 048
  5. ALLEGRA [Concomitant]
     Route: 048
  6. FLAVITAN [Concomitant]
     Route: 048
  7. PYDOXAL [Concomitant]
     Route: 048
  8. POLARAMINE [Concomitant]
     Route: 048
  9. NU LOTAN [Concomitant]
     Route: 048
  10. NATRIX [Concomitant]
     Indication: BLOOD PRESSURE
     Dosage: DAILY DOSE:20MG
     Route: 048
     Dates: start: 20080127, end: 20080130

REACTIONS (3)
  - ALTERED STATE OF CONSCIOUSNESS [None]
  - AMNESIA [None]
  - MOVEMENT DISORDER [None]
